FAERS Safety Report 12313454 (Version 2)
Quarter: 2016Q2

REPORT INFORMATION
  Report Type: Report from Study
  Country: US (occurrence: US)
  Receive Date: 20160428
  Receipt Date: 20160504
  Transmission Date: 20160815
  Serious: Yes (Hospitalization)
  Sender: FDA-Public Use
  Company Number: US-ROCHE-1746532

PATIENT
  Age: 54 Year
  Sex: Male
  Weight: 111.49 kg

DRUGS (8)
  1. ALBUTEROL. [Concomitant]
     Active Substance: ALBUTEROL
     Route: 065
  2. HUMALOG [Concomitant]
     Active Substance: INSULIN LISPRO
  3. PEPCID [Concomitant]
     Active Substance: FAMOTIDINE
  4. LANTUS [Concomitant]
     Active Substance: INSULIN GLARGINE
  5. SPIRIVA [Concomitant]
     Active Substance: TIOTROPIUM BROMIDE MONOHYDRATE
  6. XOLAIR [Suspect]
     Active Substance: OMALIZUMAB
     Indication: ASTHMA
     Route: 065
     Dates: start: 20160414
  7. OXYCODONE [Concomitant]
     Active Substance: OXYCODONE
     Dosage: 1 TABLET EVERY 4 HOURS AS NEEDED
     Route: 065
  8. XOLAIR [Suspect]
     Active Substance: OMALIZUMAB
     Indication: HYPERSENSITIVITY

REACTIONS (5)
  - Chest discomfort [Unknown]
  - Cough [Unknown]
  - Rash [Unknown]
  - Urticaria [Unknown]
  - Wheezing [Unknown]

NARRATIVE: CASE EVENT DATE: 20160414
